FAERS Safety Report 4640519-1 (Version None)
Quarter: 2005Q2

REPORT INFORMATION
  Report Type: 
  Country: None (occurrence: None)
  Receive Date: 20050328
  Receipt Date: 20050201
  Transmission Date: 20051028
  Serious: No
  Sender: FDA-Public Use
  Company Number: USA050289652

PATIENT
  Age: 13 Year
  Sex: Male
  Weight: 42 kg

DRUGS (2)
  1. STRATTERA [Suspect]
     Indication: ATTENTION DEFICIT/HYPERACTIVITY DISORDER
     Dosage: 25 MG DAY
     Dates: start: 20040601
  2. MULTI-VITAMINS [Concomitant]

REACTIONS (4)
  - DECREASED APPETITE [None]
  - EDUCATIONAL PROBLEM [None]
  - FATIGUE [None]
  - WEIGHT GAIN POOR [None]
